FAERS Safety Report 7676760-3 (Version None)
Quarter: 2011Q3

REPORT INFORMATION
  Report Type: 
  Country: None (occurrence: None)
  Receive Date: 20110809
  Receipt Date: 20110809
  Transmission Date: 20111222
  Serious: No
  Sender: FDA-Public Use
  Company Number: None

PATIENT
  Age: 50 Year
  Sex: Female
  Weight: 63.9 kg

DRUGS (1)
  1. NICOTINE [Suspect]
     Dosage: 21 MG EVERY DAY TOP
     Route: 061
     Dates: start: 20110315, end: 20110607

REACTIONS (4)
  - WOUND SECRETION [None]
  - PRURITUS [None]
  - RASH [None]
  - SKIN LESION [None]
